FAERS Safety Report 9681715 (Version 1)
Quarter: 2013Q4

REPORT INFORMATION
  Report Type: Spontaneous
  Country: US (occurrence: US)
  Receive Date: 20131111
  Receipt Date: 20131111
  Transmission Date: 20140711
  Serious: Yes (Death)
  Sender: FDA-Public Use
  Company Number: US-GLAXOSMITHKLINE-A1048472A

PATIENT
  Age: 72 Year
  Sex: Female

DRUGS (3)
  1. ADVAIR [Suspect]
     Indication: CHRONIC OBSTRUCTIVE PULMONARY DISEASE
     Route: 055
  2. VENTOLIN HFA [Suspect]
     Indication: ASTHMA
     Route: 055
  3. CONCURRENT MEDICATIONS [Concomitant]

REACTIONS (2)
  - Neoplasm malignant [Fatal]
  - Drug administration error [Unknown]
